FAERS Safety Report 5846601-5 (Version None)
Quarter: 2008Q3

REPORT INFORMATION
  Report Type: 
  Country: None (occurrence: None)
  Receive Date: 20080815
  Receipt Date: 20080806
  Transmission Date: 20090109
  Serious: Yes (Other)
  Sender: FDA-Public Use
  Company Number: CA-JNJFOC-20080801842

PATIENT
  Sex: Male
  Weight: 71.2 kg

DRUGS (1)
  1. REMICADE [Suspect]
     Indication: CROHN'S DISEASE
     Dosage: PATIENT HAS RECEIVED A TOTAL OF 30 INFUSIONS
     Route: 042

REACTIONS (3)
  - PHARYNGITIS STREPTOCOCCAL [None]
  - SINUSITIS [None]
  - WEIGHT DECREASED [None]
